FAERS Safety Report 20127026 (Version 1)
Quarter: 2021Q4

REPORT INFORMATION
  Report Type: Spontaneous
  Country: US (occurrence: None)
  Receive Date: 20211129
  Receipt Date: 20211129
  Transmission Date: 20220303
  Serious: No
  Sender: FDA-Public Use
  Company Number: None

PATIENT
  Age: 49 Year
  Sex: Female

DRUGS (2)
  1. ALBUTEROL [Suspect]
     Active Substance: ALBUTEROL
     Indication: Multiple allergies
     Dosage: OTHER QUANTITY : 2 PUFFS;?OTHER FREQUENCY : Q6H PRN;?
     Route: 055
  2. ALBUTEROL [Suspect]
     Active Substance: ALBUTEROL
     Indication: Asthma

REACTIONS (3)
  - Chest discomfort [None]
  - Multiple allergies [None]
  - Headache [None]

NARRATIVE: CASE EVENT DATE: 20211101
